FAERS Safety Report 8273626-5 (Version None)
Quarter: 2012Q2

REPORT INFORMATION
  Report Type: 
  Country: None (occurrence: None)
  Receive Date: 20120411
  Receipt Date: 20120208
  Transmission Date: 20120825
  Serious: No
  Sender: FDA-Public Use
  Company Number: US-TEVA-321841USA

PATIENT
  Sex: Male
  Weight: 122.58 kg

DRUGS (3)
  1. NUVIGIL [Suspect]
     Indication: SLEEP APNOEA SYNDROME
     Dosage: 250 MILLIGRAM;
     Route: 048
     Dates: start: 20120207
  2. ALISKIREN [Concomitant]
     Indication: BLOOD PRESSURE
  3. AMIODIPINE [Concomitant]
     Indication: BLOOD PRESSURE

REACTIONS (2)
  - POOR QUALITY SLEEP [None]
  - DRUG EFFECT INCREASED [None]
